FAERS Safety Report 6736982-2 (Version None)
Quarter: 2010Q2

REPORT INFORMATION
  Report Type: 
  Country: None (occurrence: None)
  Receive Date: 20100523
  Receipt Date: 20100421
  Transmission Date: 20101027
  Serious: No
  Sender: FDA-Public Use
  Company Number: US-ALLERGAN-1005243US

PATIENT
  Age: 71 Year
  Sex: Female

DRUGS (8)
  1. COMBIGAN [Suspect]
     Indication: GLAUCOMA
     Dosage: UNK
     Dates: start: 20090727
  2. TRAVATAN [Concomitant]
     Indication: GLAUCOMA
     Dosage: UNK
     Dates: end: 20100310
  3. RESTASIS [Concomitant]
     Indication: DRY EYE
     Dosage: UNK
     Dates: end: 20100409
  4. REFRESH PLUS [Concomitant]
  5. REFRESH PM [Concomitant]
     Dosage: UNK
     Route: 047
  6. LIPITOR [Concomitant]
     Indication: BLOOD CHOLESTEROL INCREASED
  7. LEVOTHYROXINE SODIUM [Concomitant]
     Indication: HYPOTHYROIDISM
  8. METOPROLOL TARTRATE [Concomitant]
     Dosage: 25 MG, QD

REACTIONS (2)
  - ERYTHEMA OF EYELID [None]
  - EYELID OEDEMA [None]
